FAERS Safety Report 16161914 (Version 1)
Quarter: 2019Q2

REPORT INFORMATION
  Report Type: Spontaneous
  Country: US (occurrence: US)
  Receive Date: 20190301
  Receipt Date: 20190301
  Transmission Date: 20190711
  Serious: Yes (Hospitalization)
  Sender: FDA-Public Use
  Company Number: None

PATIENT
  Age: 57 Year
  Sex: Male
  Weight: 74.4 kg

DRUGS (1)
  1. RITUXIMAB. [Suspect]
     Active Substance: RITUXIMAB
     Dates: end: 20190220

REACTIONS (5)
  - Nausea [None]
  - Pyrexia [None]
  - Rash [None]
  - Rash generalised [None]
  - Diarrhoea [None]

NARRATIVE: CASE EVENT DATE: 20190226
